FAERS Safety Report 5233388-2 (Version None)
Quarter: 2007Q1

REPORT INFORMATION
  Report Type: 
  Country: None (occurrence: None)
  Receive Date: 20070206
  Receipt Date: 20070122
  Transmission Date: 20070707
  Serious: Yes (Hospitalization)
  Sender: FDA-Public Use
  Company Number: 2006BI018551

PATIENT
  Age: 49 Year
  Sex: Female

DRUGS (1)
  1. NATALIZUMAB [Suspect]
     Indication: MULTIPLE SCLEROSIS
     Dosage: 300 MG; QM; IV
     Route: 042
     Dates: start: 20060918

REACTIONS (12)
  - APHAGIA [None]
  - CLOSTRIDIAL INFECTION [None]
  - CONDITION AGGRAVATED [None]
  - DELIRIUM [None]
  - MENTAL DISORDER [None]
  - MULTIPLE SCLEROSIS [None]
  - NO THERAPEUTIC RESPONSE [None]
  - SEDATION [None]
  - SEPSIS [None]
  - SUPRAPUBIC CATHETER INSERTION [None]
  - UNEVALUABLE EVENT [None]
  - URINARY TRACT INFECTION [None]
